FAERS Safety Report 9280217 (Version 1)
Quarter: 2013Q2

REPORT INFORMATION
  Report Type: Spontaneous
  Country: AT (occurrence: AT)
  Receive Date: 20130509
  Receipt Date: 20130509
  Transmission Date: 20140414
  Serious: Yes (Other)
  Sender: FDA-Public Use
  Company Number: AT-JNJFOC-20130209273

PATIENT
  Age: 85 Year
  Sex: Female
  Weight: 69.84 kg

DRUGS (5)
  1. XARELTO [Suspect]
     Indication: PULMONARY EMBOLISM
     Route: 065
     Dates: start: 20130115, end: 20130325
  2. XARELTO [Suspect]
     Indication: DEEP VEIN THROMBOSIS
     Route: 065
     Dates: start: 20130115, end: 20130325
  3. THYREX [Concomitant]
     Indication: GOITRE
     Dosage: 100 G (UNITS EXACTLY UNKNOWN)
     Route: 065
  4. LUTEIN [Concomitant]
     Indication: MACULAR DEGENERATION
     Route: 065
  5. BERODUAL [Concomitant]
     Indication: EMPHYSEMA
     Route: 065

REACTIONS (4)
  - Haematuria [Not Recovered/Not Resolved]
  - Cystitis haemorrhagic [Not Recovered/Not Resolved]
  - Vaginal haemorrhage [Not Recovered/Not Resolved]
  - Cerebrovascular accident [Unknown]
